FAERS Safety Report 4465270-2 (Version None)
Quarter: 2004Q4

REPORT INFORMATION
  Report Type: 
  Country: None (occurrence: None)
  Receive Date: 20041004
  Receipt Date: 20040927
  Transmission Date: 20050328
  Serious: Yes (Hospitalization)
  Sender: FDA-Public Use
  Company Number: US-JNJFOC-20040606827

PATIENT
  Sex: Female
  Weight: 95.71 kg

DRUGS (12)
  1. REMICADE [Suspect]
     Indication: CROHN'S DISEASE
     Route: 042
  2. METHOTREXATE SODIUM [Suspect]
     Indication: CROHN'S DISEASE
  3. ASACOL [Concomitant]
  4. COLOCORT [Concomitant]
     Route: 054
  5. ROWASA [Concomitant]
     Route: 054
  6. VIOXX [Concomitant]
  7. HYOSCYAMINE [Concomitant]
  8. CYCLOBENZAPRINE HCL [Concomitant]
  9. ULTRACET [Concomitant]
  10. SEROQUEL [Concomitant]
  11. PREMARIN [Concomitant]
  12. FOLIC ACID [Concomitant]

REACTIONS (5)
  - DYSPNOEA [None]
  - LUNG INFILTRATION [None]
  - PNEUMONITIS [None]
  - TOTAL LUNG CAPACITY DECREASED [None]
  - TYPE IV HYPERSENSITIVITY REACTION [None]
